FAERS Safety Report 17587275 (Version 1)
Quarter: 2020Q1

REPORT INFORMATION
  Report Type: Spontaneous
  Country: US (occurrence: US)
  Receive Date: 20200326
  Receipt Date: 20200326
  Transmission Date: 20200409
  Serious: Yes (Other)
  Sender: FDA-Public Use
  Company Number: NVSC2020US079120

PATIENT
  Age: 22 Year
  Sex: Male

DRUGS (1)
  1. KYMRIAH [Suspect]
     Active Substance: TISAGENLECLEUCEL
     Indication: ACUTE LYMPHOCYTIC LEUKAEMIA
     Dosage: UNK
     Route: 065
     Dates: start: 201812

REACTIONS (8)
  - Recurrent cancer [Unknown]
  - Pyrexia [Unknown]
  - Tremor [Unknown]
  - Cytokine release syndrome [Unknown]
  - Influenza [Unknown]
  - Vomiting [Unknown]
  - Acute lymphocytic leukaemia [Unknown]
  - Migraine [Unknown]

NARRATIVE: CASE EVENT DATE: 201907
